FAERS Safety Report 4453235-6 (Version None)
Quarter: 2004Q3

REPORT INFORMATION
  Report Type: 
  Country: None (occurrence: None)
  Receive Date: 20040920
  Receipt Date: 20040908
  Transmission Date: 20050211
  Serious: Yes (Life-Threatening)
  Sender: FDA-Public Use
  Company Number: NL-JNJFOC-20040506804

PATIENT
  Sex: Male

DRUGS (3)
  1. CORDIUM [Suspect]
     Indication: DRUG USE FOR UNKNOWN INDICATION
     Dosage: ^2 DF^
     Route: 049
  2. ACARBOSE [Concomitant]
     Indication: DIABETES MELLITUS
     Route: 049
  3. WARFARIN POTASSIUM [Concomitant]
     Indication: ATRIAL FIBRILLATION
     Route: 049

REACTIONS (3)
  - CONGESTIVE CARDIOMYOPATHY [None]
  - OVERDOSE [None]
  - VENTRICULAR FIBRILLATION [None]
